FAERS Safety Report 4572223-2 (Version None)
Quarter: 2005Q1

REPORT INFORMATION
  Report Type: 
  Country: None (occurrence: None)
  Receive Date: 20050203
  Receipt Date: 20050108
  Transmission Date: 20050727
  Serious: Yes (Disabling)
  Sender: FDA-Public Use
  Company Number: GBWYE379828JAN05

PATIENT
  Age: 88 Year
  Sex: Male

DRUGS (3)
  1. EFFEXOR [Suspect]
     Indication: DEPRESSION
     Dosage: 20 MG 2X PER 1 DAY
     Route: 048
     Dates: start: 20050104, end: 20050111
  2. CLOPIDOGREL BISULFATE [Concomitant]
  3. AMLODIPINE [Concomitant]

REACTIONS (2)
  - ANGLE CLOSURE GLAUCOMA [None]
  - BLINDNESS UNILATERAL [None]
